FAERS Safety Report 9959954 (Version 1)
Quarter: 2014Q1

REPORT INFORMATION
  Report Type: Spontaneous
  Country: US (occurrence: None)
  Receive Date: 20140228
  Receipt Date: 20140228
  Transmission Date: 20141002
  Serious: Yes (Life-Threatening, Hospitalization)
  Sender: FDA-Public Use
  Company Number: None

PATIENT
  Age: 75 Year
  Sex: Female
  Weight: 143.34 kg

DRUGS (24)
  1. WARFARIN [Suspect]
     Indication: DEEP VEIN THROMBOSIS
     Dosage: 8 PILLS DAILY, QD, ORAL
     Route: 048
     Dates: start: 20130401, end: 20140219
  2. ADVAIR DISKUS [Concomitant]
  3. ALBUTEROL SULFATE [Concomitant]
  4. NEB SOLUTION [Concomitant]
  5. BENEFIBER [Concomitant]
  6. MITRAZOL [Concomitant]
  7. MIRAPEX [Concomitant]
  8. TUSSIN [Concomitant]
  9. INSULIN [Concomitant]
  10. CLOBETASOL [Concomitant]
  11. DULCOLAX [Concomitant]
  12. TRIAMCINOLONE ACETONIDE [Concomitant]
  13. SARNA ANTI-ITCH [Concomitant]
  14. FERROUS SULFATE [Concomitant]
  15. CALCIUM CARBONATE [Concomitant]
  16. ACETAMINOPHEN [Concomitant]
  17. PROCRIT [Concomitant]
  18. SIMVASTATIN [Concomitant]
  19. PRINIVIL [Concomitant]
  20. METOPROLOL TARTRATE [Concomitant]
  21. ALBUTEROL SULFATE HFA [Concomitant]
  22. DOCUSATE SODIUM [Concomitant]
  23. ONE TOUCH ULTRA TEST STRIPS [Concomitant]
  24. PROTONIX [Concomitant]

REACTIONS (3)
  - International normalised ratio increased [None]
  - Haematoma [None]
  - Compartment syndrome [None]
